FAERS Safety Report 10520311 (Version 1)
Quarter: 2014Q4

REPORT INFORMATION
  Report Type: Spontaneous
  Country: US (occurrence: US)
  Receive Date: 20141015
  Receipt Date: 20141015
  Transmission Date: 20150528
  Serious: No
  Sender: FDA-Public Use
  Company Number: US-GLAXOSMITHKLINE-US2014GSK002871

PATIENT
  Sex: Female

DRUGS (5)
  1. ADVAIR DISKUS [Suspect]
     Active Substance: FLUTICASONE PROPIONATE\SALMETEROL XINAFOATE
     Dosage: 1 PUFF, BID
     Route: 065
  2. UNSPECIFIED INHALER [Concomitant]
     Active Substance: UNSPECIFIED INGREDIENT
  3. ADVAIR DISKUS [Suspect]
     Active Substance: FLUTICASONE PROPIONATE\SALMETEROL XINAFOATE
     Indication: CHRONIC OBSTRUCTIVE PULMONARY DISEASE
     Dosage: 2 PUFFS, BID
     Route: 065
  4. OXYGEN. [Concomitant]
     Active Substance: OXYGEN
  5. CARDIZEM [Concomitant]
     Active Substance: DILTIAZEM HYDROCHLORIDE

REACTIONS (2)
  - Therapeutic response unexpected [Unknown]
  - Drug administration error [Unknown]
